FAERS Safety Report 12261717 (Version 1)
Quarter: 2016Q2

REPORT INFORMATION
  Report Type: Spontaneous
  Country: US (occurrence: None)
  Receive Date: 20160412
  Receipt Date: 20160412
  Transmission Date: 20160815
  Serious: Yes (Hospitalization)
  Sender: FDA-Public Use
  Company Number: None

PATIENT
  Age: 44 Year
  Sex: Male
  Weight: 86.2 kg

DRUGS (2)
  1. LITHIUM. [Suspect]
     Active Substance: LITHIUM
     Indication: SCHIZOAFFECTIVE DISORDER
     Route: 048
     Dates: start: 20151007, end: 20160407
  2. HYDROCHLOROTHIAZIDE. [Suspect]
     Active Substance: HYDROCHLOROTHIAZIDE
     Indication: POLYURIA
     Route: 048
     Dates: start: 20151118, end: 20160408

REACTIONS (4)
  - Antipsychotic drug level increased [None]
  - Dizziness [None]
  - Acute kidney injury [None]
  - Confusional state [None]

NARRATIVE: CASE EVENT DATE: 20160407
